FAERS Safety Report 9413381 (Version 1)
Quarter: 2013Q3

REPORT INFORMATION
  Report Type: Spontaneous
  Country: JP (occurrence: None)
  Receive Date: 20130717
  Receipt Date: 20130717
  Transmission Date: 20140515
  Serious: Yes (Other)
  Sender: FDA-Public Use
  Company Number: SYM-2013-05981

PATIENT
  Age: 58 Year
  Sex: Male

DRUGS (2)
  1. FLUOROURACIL (FLUOROURACIL) (FLUOROURACIL) [Suspect]
     Indication: GASTROOESOPHAGEAL CANCER
     Dates: start: 200106, end: 200404
  2. CISPLATIN [Suspect]
     Indication: GASTROOESOPHAGEAL CANCER
     Dates: start: 200106, end: 200404

REACTIONS (1)
  - Bone marrow failure [None]
